FAERS Safety Report 18488322 (Version 2)
Quarter: 2020Q4

REPORT INFORMATION
  Report Type: Spontaneous
  Country: JP (occurrence: JP)
  Receive Date: 20201110
  Receipt Date: 20201208
  Transmission Date: 20210114
  Serious: Yes (Death)
  Sender: FDA-Public Use
  Company Number: JP-GILEAD-2020-0492775

PATIENT
  Age: 70 Year
  Sex: Female
  Weight: 46.7 kg

DRUGS (7)
  1. TAZOBACTAM SODIUM AND PIPERACILLIN SODIUM [Concomitant]
     Active Substance: PIPERACILLIN SODIUM\TAZOBACTAM SODIUM
     Indication: COVID-19
     Dosage: 4.5 G, TID
     Route: 041
     Dates: start: 20200825, end: 20200829
  2. CEFTRIAXONE NA [Concomitant]
     Active Substance: CEFTRIAXONE
     Indication: COVID-19
     Dosage: 2 G, QD
     Route: 041
     Dates: start: 20200713, end: 20200720
  3. MEROPENEM [MEROPENEM TRIHYDRATE] [Concomitant]
     Active Substance: MEROPENEM
     Indication: COVID-19
     Dosage: 1 G, TID
     Route: 041
     Dates: start: 20200720, end: 20200806
  4. AZITHROMYCIN [AZITHROMYCIN MONOHYDRATE] [Concomitant]
     Indication: COVID-19
     Dosage: 500 MG, QD
     Route: 048
     Dates: start: 20200714, end: 20200723
  5. DEXART [Concomitant]
     Active Substance: DEXAMETHASONE SODIUM PHOSPHATE
     Indication: COVID-19
     Dosage: 6 MG, QD
     Route: 041
     Dates: start: 20200715, end: 20200829
  6. REMDESIVIR. [Suspect]
     Active Substance: REMDESIVIR
     Indication: COVID-19
     Dosage: 100 MG, QD
     Route: 041
     Dates: start: 20200815, end: 20200824
  7. HEPARIN [Concomitant]
     Active Substance: HEPARIN SODIUM
     Indication: COVID-19
     Dosage: UNK
     Route: 041
     Dates: start: 20200718, end: 20200811

REACTIONS (1)
  - COVID-19 [Fatal]
